FAERS Safety Report 11215555 (Version 8)
Quarter: 2016Q2

REPORT INFORMATION
  Report Type: Report from Study
  Country: ES (occurrence: ES)
  Receive Date: 20150624
  Receipt Date: 20160523
  Transmission Date: 20160815
  Serious: Yes (Hospitalization)
  Sender: FDA-Public Use
  Company Number: ES-ROCHE-1595501

PATIENT
  Age: 75 Year
  Sex: Male
  Weight: 60 kg

DRUGS (21)
  1. BENDAMUSTINE [Suspect]
     Active Substance: BENDAMUSTINE
     Indication: NON-HODGKIN^S LYMPHOMA UNSPECIFIED HISTOLOGY INDOLENT
     Dosage: DATE OF MOST RECENT DOSE PRIOR TO SEPTIC SHOCK (RESPIRATORY RELATED): 15/APR/2015?DATE OF MOST RECEN
     Route: 042
     Dates: start: 20141126, end: 20150417
  2. CLEXANE [Concomitant]
     Active Substance: ENOXAPARIN SODIUM
     Indication: THROMBOSIS PROPHYLAXIS
     Route: 065
     Dates: start: 20151029, end: 20151029
  3. ENOXAPARIN SODIUM. [Concomitant]
     Active Substance: ENOXAPARIN SODIUM
     Route: 065
     Dates: start: 20160313, end: 20160315
  4. PARACETAMOL [Concomitant]
     Active Substance: ACETAMINOPHEN
     Indication: HIDRADENITIS
     Route: 065
     Dates: start: 20150613
  5. NOLOTIL [Concomitant]
     Active Substance: METAMIZOLE
     Indication: HIDRADENITIS
     Route: 065
     Dates: start: 20150613, end: 20150613
  6. FUROSEMIDE. [Concomitant]
     Active Substance: FUROSEMIDE
     Route: 065
     Dates: start: 20160314, end: 20160314
  7. RIFALDIN [Concomitant]
     Active Substance: RIFAMPIN
     Indication: RASH
     Route: 065
     Dates: start: 20151204, end: 20151221
  8. CLINDAMICIN [Concomitant]
     Indication: RASH
     Route: 065
     Dates: start: 20151204, end: 20151221
  9. URBASON [Concomitant]
     Active Substance: METHYLPREDNISOLONE
  10. MUPIROCINE [Concomitant]
  11. FUROSEMIDE. [Concomitant]
     Active Substance: FUROSEMIDE
     Route: 065
     Dates: start: 20150614, end: 20150616
  12. OMEPRAZOL [Concomitant]
     Active Substance: OMEPRAZOLE
     Indication: PROPHYLAXIS
     Route: 065
  13. LINEZOLID. [Concomitant]
     Active Substance: LINEZOLID
     Indication: HIDRADENITIS
     Route: 065
     Dates: start: 20150615, end: 20150626
  14. SERTRALINE [Concomitant]
     Active Substance: SERTRALINE HYDROCHLORIDE
     Indication: DEPRESSION
     Route: 065
     Dates: start: 20160201
  15. VALACICLOVIR [Concomitant]
     Active Substance: VALACYCLOVIR HYDROCHLORIDE
     Indication: RASH
     Route: 065
     Dates: start: 201512, end: 20160115
  16. MUPIROCINE [Concomitant]
     Indication: RASH
     Route: 065
     Dates: start: 20151221
  17. OBINUTUZUMAB [Suspect]
     Active Substance: OBINUTUZUMAB
     Indication: NON-HODGKIN^S LYMPHOMA UNSPECIFIED HISTOLOGY INDOLENT
     Dosage: DATE OF MOST RECENT DOSE PRIOR TO RESPIRATORY INFECTION: 16/APR/2015?DATE OF MOST RECENT DOSE PRIOR
     Route: 042
     Dates: start: 20141126
  18. ATORVASTATINE [Concomitant]
     Active Substance: ATORVASTATIN
     Indication: BLOOD CHOLESTEROL
     Route: 065
  19. METFORMIN [Concomitant]
     Active Substance: METFORMIN HYDROCHLORIDE
     Indication: DIABETES MELLITUS
  20. PARACETAMOL [Concomitant]
     Active Substance: ACETAMINOPHEN
     Indication: CHILLS
     Route: 065
     Dates: start: 20160407, end: 20160407
  21. VALACICLOVIR [Concomitant]
     Active Substance: VALACYCLOVIR HYDROCHLORIDE
     Indication: RASH
     Route: 065
     Dates: start: 20151201, end: 20151204

REACTIONS (6)
  - Respiratory tract infection [Recovered/Resolved]
  - General physical health deterioration [Not Recovered/Not Resolved]
  - Respiratory tract infection [Not Recovered/Not Resolved]
  - Febrile neutropenia [Recovered/Resolved]
  - Pneumonia [Recovered/Resolved]
  - Septic shock [Recovered/Resolved]

NARRATIVE: CASE EVENT DATE: 20150420
